FAERS Safety Report 7180071-2 (Version None)
Quarter: 2010Q4

REPORT INFORMATION
  Report Type: 
  Country: None (occurrence: None)
  Receive Date: 20101209
  Receipt Date: 20101203
  Transmission Date: 20110411
  Serious: Yes (Death)
  Sender: FDA-Public Use
  Company Number: 2010US004925

PATIENT
  Age: 54 Year
  Sex: Male
  Weight: 112 kg

DRUGS (9)
  1. PROGRAF [Suspect]
     Indication: RENAL TRANSPLANT
     Dosage: 4.5 MG, BID, ORAL
     Route: 048
     Dates: start: 20080605, end: 20100801
  2. GABAPENTIN [Concomitant]
  3. KLOR-CON [Concomitant]
  4. LASIX [Concomitant]
  5. LOPRESSOR [Concomitant]
  6. MYCOPHENOLIC ACID [Concomitant]
  7. NORVASC [Concomitant]
  8. ZOCOR [Concomitant]
  9. NOVOLOG [Concomitant]

REACTIONS (1)
  - DEATH [None]
